FAERS Safety Report 23330925 (Version 1)
Quarter: 2023Q4

REPORT INFORMATION
  Report Type: Spontaneous
  Country: CH (occurrence: DE)
  Receive Date: 20231222
  Receipt Date: 20231222
  Transmission Date: 20240110
  Serious: Yes (Other)
  Sender: FDA-Public Use
  Company Number: CH-PFIZER INC-202300447712

PATIENT
  Age: 69 Year
  Sex: Female

DRUGS (1)
  1. METHOTREXATE SODIUM [Suspect]
     Active Substance: METHOTREXATE SODIUM
     Indication: Rheumatic disorder
     Dosage: 16.5 MG, WEEKLY

REACTIONS (2)
  - Bone disorder [Unknown]
  - Lower limb fracture [Unknown]
